FAERS Safety Report 7037813-6 (Version None)
Quarter: 2010Q4

REPORT INFORMATION
  Report Type: 
  Country: None (occurrence: None)
  Receive Date: 20101011
  Receipt Date: 20100929
  Transmission Date: 20110411
  Serious: Yes (Hospitalization, Other)
  Sender: FDA-Public Use
  Company Number: JP-ROCHE-727087

PATIENT
  Sex: Male
  Weight: 59 kg

DRUGS (13)
  1. AVASTIN [Suspect]
     Indication: NON-SMALL CELL LUNG CANCER
     Route: 042
     Dates: start: 20100810, end: 20100810
  2. ASPIRIN [Suspect]
     Indication: PRODUCT USED FOR UNKNOWN INDICATION
     Route: 048
     Dates: end: 20100817
  3. WARFARIN SODIUM [Suspect]
     Indication: PRODUCT USED FOR UNKNOWN INDICATION
     Route: 048
     Dates: end: 20100817
  4. PACLITAXEL [Concomitant]
     Route: 041
     Dates: start: 20100810, end: 20100810
  5. CARBOPLATIN [Concomitant]
     Route: 041
     Dates: start: 20100810, end: 20100810
  6. AMARYL [Concomitant]
     Route: 048
     Dates: end: 20100823
  7. BASEN [Concomitant]
     Route: 048
     Dates: end: 20100823
  8. BLOPRESS [Concomitant]
     Route: 048
     Dates: end: 20100823
  9. LASIX [Concomitant]
     Route: 048
     Dates: end: 20100803
  10. ALDACTONE [Concomitant]
     Route: 048
     Dates: end: 20100823
  11. CONIEL [Concomitant]
     Route: 048
     Dates: end: 20100823
  12. GOSHAJINKIGAN [Concomitant]
     Route: 048
     Dates: start: 20100810, end: 20100823
  13. ALOSITOL [Concomitant]
     Route: 048
     Dates: start: 20100812, end: 20100823

REACTIONS (10)
  - CARDIO-RESPIRATORY ARREST [None]
  - DEPRESSED LEVEL OF CONSCIOUSNESS [None]
  - DYSPNOEA [None]
  - EPISTAXIS [None]
  - GASTROINTESTINAL HAEMORRHAGE [None]
  - HAEMOPTYSIS [None]
  - HYPERURICAEMIA [None]
  - OXYGEN SATURATION DECREASED [None]
  - PULMONARY THROMBOSIS [None]
  - WHITE BLOOD CELL COUNT DECREASED [None]
